FAERS Safety Report 11488036 (Version 1)
Quarter: 2015Q3

REPORT INFORMATION
  Report Type: Spontaneous
  Country: HR (occurrence: HR)
  Receive Date: 20150909
  Receipt Date: 20150909
  Transmission Date: 20151125
  Serious: Yes (Hospitalization)
  Sender: FDA-Public Use
  Company Number: HR-MYLANLABS-2015M1029993

PATIENT

DRUGS (1)
  1. ALLOPURINOL. [Suspect]
     Active Substance: ALLOPURINOL
     Indication: GOUT
     Dosage: MONITORED FOR 6 YEARS ON A 400MG DAILY DOSE
     Route: 065

REACTIONS (3)
  - Peripheral sensorimotor neuropathy [Recovering/Resolving]
  - Microcytic anaemia [Recovered/Resolved]
  - Copper deficiency [Recovered/Resolved]
